FAERS Safety Report 8610850-3 (Version None)
Quarter: 2012Q3

REPORT INFORMATION
  Report Type: 
  Country: None (occurrence: None)
  Receive Date: 20120808
  Receipt Date: 20120802
  Transmission Date: 20120928
  Serious: Yes (Other)
  Sender: FDA-Public Use
  Company Number: GB-GDP-12414638

PATIENT
  Age: 14 Year
  Sex: Female
  Weight: 42.1 kg

DRUGS (5)
  1. ERYTHROMYCIN [Suspect]
     Indication: PRODUCT USED FOR UNKNOWN INDICATION
     Dates: start: 20120724
  2. ERYTHROMYCIN [Suspect]
     Indication: PRODUCT USED FOR UNKNOWN INDICATION
     Dates: start: 20120711, end: 20120718
  3. DOXYCYCLINE [Suspect]
     Indication: PRODUCT USED FOR UNKNOWN INDICATION
     Dates: start: 20120724
  4. CLOTRIMAZOLE [Concomitant]
  5. NORETHINDRONE [Concomitant]

REACTIONS (1)
  - THROAT TIGHTNESS [None]
